FAERS Safety Report 4424835-4 (Version None)
Quarter: 2004Q3

REPORT INFORMATION
  Report Type: 
  Country: None (occurrence: None)
  Receive Date: 20040812
  Receipt Date: 20040804
  Transmission Date: 20050211
  Serious: Yes (Other)
  Sender: FDA-Public Use
  Company Number: US-MERCK-0408USA00417

PATIENT
  Age: 15 Year
  Sex: Male

DRUGS (5)
  1. [THERAPY UNSPECIFIED] [Concomitant]
     Route: 065
  2. DEPAKOTE [Concomitant]
     Indication: EPILEPSY
     Route: 065
  3. ADVAIR [Concomitant]
     Indication: ASTHMA
     Route: 065
  4. SINGULAIR [Suspect]
     Indication: ASTHMA
     Route: 065
  5. MAXAIR [Concomitant]
     Route: 065

REACTIONS (3)
  - CARDIAC DISORDER [None]
  - DEHYDRATION [None]
  - WEIGHT DECREASED [None]
